FAERS Safety Report 16132016 (Version 1)
Quarter: 2019Q1

REPORT INFORMATION
  Report Type: Spontaneous
  Country: US (occurrence: US)
  Receive Date: 20190329
  Receipt Date: 20190329
  Transmission Date: 20190418
  Serious: No
  Sender: FDA-Public Use
  Company Number: US-MTPC-MTDA2019-0039791

PATIENT

DRUGS (1)
  1. RADICAVA [Suspect]
     Active Substance: EDARAVONE
     Dosage: UNK
     Route: 065

REACTIONS (2)
  - Muscular weakness [Unknown]
  - Fatigue [Unknown]
